FAERS Safety Report 9918005 (Version 2)
Quarter: 2014Q1

REPORT INFORMATION
  Report Type: Spontaneous
  Country: US (occurrence: US)
  Receive Date: 20140222
  Receipt Date: 20140222
  Transmission Date: 20141002
  Serious: Yes (Other)
  Sender: FDA-Public Use
  Company Number: US-GE HEALTHCARE MEDICAL DIAGNOSTICS-OSCN-PR-0910S-0451

PATIENT
  Age: 80 Year
  Sex: Male
  Weight: 69.09 kg

DRUGS (18)
  1. OMNISCAN [Suspect]
     Indication: VERTIGO
     Dates: start: 20020313, end: 20020313
  2. OMNISCAN [Suspect]
     Indication: RENAL ARTERY STENOSIS
     Dates: start: 20050923, end: 20050923
  3. OMNISCAN [Suspect]
     Indication: RENAL ARTERY STENOSIS
     Dates: start: 20051102, end: 20051102
  4. OMNISCAN [Suspect]
     Indication: INTERMITTENT CLAUDICATION
     Dates: start: 20060104, end: 20060104
  5. OMNISCAN [Suspect]
     Indication: PERIPHERAL VASCULAR DISORDER
     Dates: start: 20060503, end: 20060503
  6. OMNISCAN [Suspect]
     Indication: GANGRENE
     Dates: start: 20060727, end: 20060727
  7. OMNISCAN [Suspect]
     Indication: ISCHAEMIA
     Dates: start: 20061009, end: 20061009
  8. OMNISCAN [Suspect]
     Indication: PERIPHERAL VASCULAR DISORDER
     Dates: start: 20061101, end: 20061101
  9. OMNISCAN [Suspect]
     Indication: ISCHAEMIA
     Dates: start: 20061127, end: 20061127
  10. OMNISCAN [Suspect]
     Indication: PERIPHERAL VASCULAR DISORDER
     Dates: start: 20061129, end: 20061129
  11. OMNISCAN [Suspect]
     Indication: PRODUCT USED FOR UNKNOWN INDICATION
     Dates: start: 20061204, end: 20061204
  12. GADOLINIUM (UNSPECIFIED) [Suspect]
     Indication: INTERMITTENT CLAUDICATION
     Dates: start: 20051228, end: 20051228
  13. GADOLINIUM (UNSPECIFIED) [Suspect]
     Indication: INTERMITTENT CLAUDICATION
  14. GADOLINIUM (UNSPECIFIED) [Suspect]
     Indication: INTERMITTENT CLAUDICATION
  15. GADOLINIUM (UNSPECIFIED) [Suspect]
     Indication: ATHERECTOMY
  16. GADOLINIUM (UNSPECIFIED) [Suspect]
     Indication: PRODUCT USED FOR UNKNOWN INDICATION
  17. OPTIMARK [Suspect]
     Indication: VERTIGO
     Dates: start: 20020313, end: 20020313
  18. MAGNEVIST [Suspect]
     Indication: PRODUCT USED FOR UNKNOWN INDICATION
     Dates: start: 20070517, end: 20070517

REACTIONS (1)
  - Nephrogenic systemic fibrosis [Not Recovered/Not Resolved]
